FAERS Safety Report 17488025 (Version 4)
Quarter: 2020Q3

REPORT INFORMATION
  Report Type: Spontaneous
  Country: US (occurrence: US)
  Receive Date: 20200303
  Receipt Date: 20200901
  Transmission Date: 20201102
  Serious: No
  Sender: FDA-Public Use
  Company Number: US-PFIZER INC-2020093667

PATIENT
  Age: 44 Year
  Sex: Female

DRUGS (1)
  1. XELJANZ [Suspect]
     Active Substance: TOFACITINIB CITRATE
     Indication: RHEUMATOID ARTHRITIS
     Dosage: 5 MG, 2X/DAY
     Route: 048
     Dates: start: 20200227, end: 202008

REACTIONS (7)
  - Taste disorder [Unknown]
  - Dermatitis [Recovered/Resolved]
  - Drug ineffective [Unknown]
  - Parosmia [Unknown]
  - Condition aggravated [Unknown]
  - Depression [Unknown]
  - Ephelides [Unknown]

NARRATIVE: CASE EVENT DATE: 2020
